FAERS Safety Report 10162292 (Version 1)
Quarter: 2014Q2

REPORT INFORMATION
  Report Type: Spontaneous
  Country: SE (occurrence: None)
  Receive Date: 20140508
  Receipt Date: 20140508
  Transmission Date: 20141212
  Serious: Yes (Other)
  Sender: FDA-Public Use
  Company Number: None

PATIENT
  Age: 65 Year
  Sex: Male
  Weight: 82 kg

DRUGS (3)
  1. VENLAFAXINE [Suspect]
  2. MIRTAZAPINE [Concomitant]
  3. LITHIUM [Concomitant]

REACTIONS (5)
  - Hypertension [None]
  - Bladder dysfunction [None]
  - Muscle spasms [None]
  - Micturition urgency [None]
  - Urinary retention [None]
